FAERS Safety Report 8840789 (Version 1)
Quarter: 2012Q4

REPORT INFORMATION
  Report Type: 
  Country: US (occurrence: US)
  Receive Date: 20121015
  Receipt Date: 20121015
  Transmission Date: 20130627
  Serious: No
  Sender: FDA-Public Use
  Company Number: US-ASTRAZENECA-2012SE75044

PATIENT
  Sex: Male

DRUGS (1)
  1. SYMBICORT PMDI [Suspect]
     Indication: ASTHMA
     Dosage: 80/4.5 MCG 1 PUFF, BID
     Route: 055

REACTIONS (4)
  - Dyspnoea [Unknown]
  - Asthma [Unknown]
  - Intentional drug misuse [Unknown]
  - Off label use [Unknown]
